FAERS Safety Report 25342153 (Version 1)
Quarter: 2025Q2

REPORT INFORMATION
  Report Type: Spontaneous
  Country: US (occurrence: US)
  Receive Date: 20250521
  Receipt Date: 20250521
  Transmission Date: 20250717
  Serious: No
  Sender: ADMA BIOLOGICS
  Company Number: ADMA2400201

PATIENT
  Age: 52 Year
  Sex: Female

DRUGS (1)
  1. ASCENIV [Suspect]
     Active Substance: HUMAN IMMUNOGLOBULIN G
     Indication: Product used for unknown indication
     Route: 042
     Dates: start: 20230206, end: 20241001

REACTIONS (2)
  - Incorrect dose administered [Unknown]
  - Product closure issue [Unknown]

NARRATIVE: CASE EVENT DATE: 20240905
